FAERS Safety Report 23286588 (Version 1)
Quarter: 2023Q4

REPORT INFORMATION
  Report Type: Spontaneous
  Country: FR (occurrence: FR)
  Receive Date: 20231212
  Receipt Date: 20231212
  Transmission Date: 20240110
  Serious: Yes (Death, Hospitalization, Other)
  Sender: FDA-Public Use
  Company Number: FR-JNJFOC-20231212414

PATIENT

DRUGS (1)
  1. IMBRUVICA [Suspect]
     Active Substance: IBRUTINIB
     Indication: Chronic lymphocytic leukaemia
     Route: 048

REACTIONS (8)
  - Death [Fatal]
  - Haemorrhage [Unknown]
  - Tachycardia paroxysmal [Unknown]
  - Cardiac failure [Unknown]
  - Cardiovascular disorder [Unknown]
  - Cardiac arrest [Unknown]
  - Atrial fibrillation [Unknown]
  - Hypertension [Unknown]
